FAERS Safety Report 23202241 (Version 3)
Quarter: 2024Q3

REPORT INFORMATION
  Report Type: Report from Study
  Country: CA (occurrence: CA)
  Receive Date: 20231120
  Receipt Date: 20240812
  Transmission Date: 20241016
  Serious: Yes (Other)
  Sender: JOHNSON AND JOHNSON
  Company Number: CA-JNJFOC-20230427152

PATIENT
  Age: 62 Year
  Sex: Female
  Weight: 66 kg

DRUGS (1)
  1. REMICADE [Suspect]
     Active Substance: INFLIXIMAB
     Indication: Crohn^s disease
     Dosage: EXPIRY DATE-30-SEP-2025, NOV-2025, 28-FEB-2026, 30-APR-2026,?BATCH NO: 23J046, EXPIRY DATE: 30-NOV-2
     Route: 041

REACTIONS (9)
  - Kidney infection [Recovered/Resolved]
  - Nephrolithiasis [Recovered/Resolved]
  - Macular degeneration [Not Recovered/Not Resolved]
  - Benign neoplasm [Recovering/Resolving]
  - Tooth extraction [Unknown]
  - Tooth disorder [Not Recovered/Not Resolved]
  - Abdominal pain [Not Recovered/Not Resolved]
  - Scar [Unknown]
  - Endometrial hyperplasia [Unknown]

NARRATIVE: CASE EVENT DATE: 20230208
